FAERS Safety Report 14800813 (Version 1)
Quarter: 2018Q2

REPORT INFORMATION
  Report Type: Spontaneous
  Country: US (occurrence: US)
  Receive Date: 20180416
  Receipt Date: 20180416
  Transmission Date: 20180711
  Serious: Yes (Other)
  Sender: FDA-Public Use
  Company Number: None

PATIENT
  Age: 68 Year
  Sex: Female
  Weight: 60.75 kg

DRUGS (5)
  1. AVORVASTATIN [Concomitant]
  2. RALOXIFENE TAB 60MG [Suspect]
     Active Substance: RALOXIFENE
     Indication: OSTEOPOROSIS
     Dosage: ?          QUANTITY:1 TABLET(S);?
     Route: 048
     Dates: start: 20180116, end: 20180414
  3. TIMOLOL. [Concomitant]
     Active Substance: TIMOLOL
  4. 50+ MULTIVITAMIN [Concomitant]
  5. LATANAOPROST [Concomitant]

REACTIONS (5)
  - Hot flush [None]
  - Insomnia [None]
  - Bone pain [None]
  - Nasopharyngitis [None]
  - Muscle spasms [None]

NARRATIVE: CASE EVENT DATE: 20180414
